FAERS Safety Report 9066702 (Version 2)
Quarter: 2013Q1

REPORT INFORMATION
  Report Type: Spontaneous
  Country: US (occurrence: US)
  Receive Date: 20130214
  Receipt Date: 20130305
  Transmission Date: 20140127
  Serious: No
  Sender: FDA-Public Use
  Company Number: US-AMGEN-USASP2013006024

PATIENT
  Sex: Female
  Weight: 81.63 kg

DRUGS (3)
  1. ENBREL [Suspect]
     Indication: RHEUMATOID ARTHRITIS
     Dosage: 50 MG, QWK
     Route: 058
     Dates: start: 200710, end: 20130214
  2. MOBIC [Concomitant]
     Indication: RHEUMATOID ARTHRITIS
     Dosage: 15 UNK, QD
     Route: 048
     Dates: end: 201302
  3. PREDNISONE [Concomitant]
     Indication: RASH
     Dosage: 10 MG, QD
     Dates: start: 201302

REACTIONS (2)
  - Rash [Unknown]
  - Eosinophil count increased [Unknown]
